FAERS Safety Report 13279852 (Version 1)
Quarter: 2017Q1

REPORT INFORMATION
  Report Type: Spontaneous
  Country: US (occurrence: US)
  Receive Date: 20170228
  Receipt Date: 20170228
  Transmission Date: 20170428
  Serious: Yes (Other)
  Sender: FDA-Public Use
  Company Number: None

PATIENT
  Age: 13 Year
  Sex: Female
  Weight: 39.6 kg

DRUGS (1)
  1. TAMIFLU [Suspect]
     Active Substance: OSELTAMIVIR PHOSPHATE
     Indication: INFLUENZA
     Dosage: QUANTITY:10 TEASPOON(S);?
     Route: 048
     Dates: start: 20170227, end: 20170227

REACTIONS (2)
  - Amnesia [None]
  - Hallucination [None]

NARRATIVE: CASE EVENT DATE: 20170227
